FAERS Safety Report 6273023-8 (Version None)
Quarter: 2009Q3

REPORT INFORMATION
  Report Type: 
  Country: None (occurrence: None)
  Receive Date: 20090715
  Receipt Date: 20090715
  Transmission Date: 20100115
  Serious: No
  Sender: FDA-Public Use
  Company Number: None

PATIENT
  Weight: 63.5036 kg

DRUGS (1)
  1. PRISTIQ [Suspect]
     Indication: DEPRESSION
     Dosage: 50MG DAY PO
     Route: 048
     Dates: start: 20090115, end: 20090501

REACTIONS (2)
  - HAEMORRHAGE SUBCUTANEOUS [None]
  - PARAESTHESIA [None]
